FAERS Safety Report 8479351-X (Version None)
Quarter: 2012Q2

REPORT INFORMATION
  Report Type: 
  Country: None (occurrence: None)
  Receive Date: 20120629
  Receipt Date: 20120621
  Transmission Date: 20120825
  Serious: Yes (Hospitalization)
  Sender: FDA-Public Use
  Company Number: US-JNJFOC-20110907538

PATIENT
  Sex: Female
  Weight: 84.2 kg

DRUGS (2)
  1. ANTIBIOTICS [Concomitant]
  2. INFLIXIMAB, RECOMBINANT [Suspect]
     Indication: CROHN'S DISEASE
     Route: 042
     Dates: start: 20040206

REACTIONS (2)
  - ANAL FISSURE [None]
  - CONSTIPATION [None]
